FAERS Safety Report 17034847 (Version 1)
Quarter: 2019Q4

REPORT INFORMATION
  Report Type: Spontaneous
  Country: US (occurrence: US)
  Receive Date: 20191115
  Receipt Date: 20191115
  Transmission Date: 20200122
  Serious: No
  Sender: FDA-Public Use
  Company Number: US-LUPIN PHARMACEUTICALS INC.-2019-06917

PATIENT
  Sex: Male

DRUGS (1)
  1. CLOBETASOL PROPIONATE CREAM USP, 0.05 [Suspect]
     Active Substance: CLOBETASOL PROPIONATE
     Indication: RADIATION INJURY
     Dosage: UNK
     Route: 061
     Dates: start: 201910

REACTIONS (2)
  - Pruritus [Recovering/Resolving]
  - Dry skin [Recovering/Resolving]

NARRATIVE: CASE EVENT DATE: 201910
